FAERS Safety Report 8023504 (Version 4)
Quarter: 2013Q2

REPORT INFORMATION
  Report Type: Spontaneous
  Country: US (occurrence: US)
  Receive Date: 20110706
  Receipt Date: 20130509
  Transmission Date: 20140414
  Serious: Yes (Other)
  Sender: FDA-Public Use
  Company Number: US-ROCHE-786744

PATIENT
  Sex: Female
  Weight: 61.2 kg

DRUGS (1)
  1. ACCUTANE [Suspect]
     Indication: ACNE
     Dosage: FROM: FEB 2000 TO MAY 2000
     Route: 065
     Dates: start: 1998, end: 2000

REACTIONS (7)
  - Colitis ulcerative [Unknown]
  - Proctitis [Unknown]
  - Injury [Unknown]
  - Inflammatory bowel disease [Unknown]
  - Intestinal haemorrhage [Unknown]
  - Gastric ulcer [Unknown]
  - Irritable bowel syndrome [Unknown]
